FAERS Safety Report 20987266 (Version 4)
Quarter: 2023Q2

REPORT INFORMATION
  Report Type: Spontaneous
  Country: HU (occurrence: HU)
  Receive Date: 20220621
  Receipt Date: 20230521
  Transmission Date: 20230721
  Serious: Yes (Death, Hospitalization, Other)
  Sender: FDA-Public Use
  Company Number: HU-002147023-NVSC2022HU136197

PATIENT
  Age: 71 Year
  Sex: Male

DRUGS (7)
  1. AZACITIDINE [Suspect]
     Active Substance: AZACITIDINE
     Indication: Acute myeloid leukaemia
     Dosage: 70 MG/M2?70 MG M-2, 28 DAY CYCLE 70 MG/M2 FOR 7 DAYS
     Dates: start: 2021
  2. LENALIDOMIDE [Suspect]
     Active Substance: LENALIDOMIDE
     Indication: Myelodysplastic syndrome
     Dosage: 10 MG, QD/EIGHT CYCLES
     Dates: start: 202010
  3. LENALIDOMIDE [Suspect]
     Active Substance: LENALIDOMIDE
     Dates: start: 2021
  4. NILOTINIB [Suspect]
     Active Substance: NILOTINIB
     Indication: Philadelphia positive chronic myeloid leukaemia
     Dosage: 2X150 MG300 MG, QD (2 X 150 MG
     Dates: start: 2021
  5. NILOTINIB [Suspect]
     Active Substance: NILOTINIB
     Dosage: 2X 300 MG600 MG, QD (2 X 300 MG), 0.5 DAY
     Dates: start: 202009
  6. VENETOCLAX [Suspect]
     Active Substance: VENETOCLAX
     Indication: Acute myeloid leukaemia
     Dosage: 400 MG, QD?TITRATED UP TO 400 MG PER DAY IN A 28-DAY CYCLE
     Dates: start: 2021
  7. HYDROXYUREA [Concomitant]
     Active Substance: HYDROXYUREA
     Indication: Cytoreductive surgery
     Dosage: UNK

REACTIONS (9)
  - Febrile neutropenia [Fatal]
  - Sepsis [Fatal]
  - Neutropenia [Unknown]
  - Pancytopenia [Unknown]
  - Transformation to acute myeloid leukaemia [Unknown]
  - Anaemia [Unknown]
  - Chronic myeloid leukaemia [Unknown]
  - Angina pectoris [Unknown]
  - Leukocytosis [Unknown]

NARRATIVE: CASE EVENT DATE: 20200701
